FAERS Safety Report 5757181-7 (Version None)
Quarter: 2008Q2

REPORT INFORMATION
  Report Type: 
  Country: None (occurrence: None)
  Receive Date: 20080529
  Receipt Date: 20080519
  Transmission Date: 20081010
  Serious: Yes (Other)
  Sender: FDA-Public Use
  Company Number: 2008AP001224

PATIENT
  Age: 50 Year
  Sex: Female
  Weight: 99.8 kg

DRUGS (23)
  1. CEFAZOLIN [Suspect]
     Indication: ESCHERICHIA BACTERAEMIA
     Dosage: 1 GM; QD; IV
     Route: 042
     Dates: start: 20061014
  2. MORPHINE [Concomitant]
  3. PROMETHAZINE [Concomitant]
  4. CIPROFLOXACIN HCL [Concomitant]
  5. VANCOMYCIN [Concomitant]
  6. NAFCILLIN SODIUM [Concomitant]
  7. RIFAMPICIN [Concomitant]
  8. IMIPENEM [Concomitant]
  9. KETOROLAC TROMETHAMINE [Concomitant]
  10. EPOETIN ALFA [Concomitant]
  11. HEPARIN [Concomitant]
  12. METOPROLOL TARTRATE [Concomitant]
  13. SEVELAMER [Concomitant]
  14. SENNOSIDE A [Concomitant]
  15. MONTELUKAST SODIUM [Concomitant]
  16. LORATADINE [Concomitant]
  17. PANTOPRAZOLE [Concomitant]
  18. BISACODYL [Concomitant]
  19. CAFFEINE [Concomitant]
  20. HYDROMORPHONE HCL [Concomitant]
  21. DOLASETRON [Concomitant]
  22. ACETAMINOPHEN [Concomitant]
  23. SALBUTAMOL W/IPRATROPIUM [Concomitant]

REACTIONS (11)
  - BLOOD ALBUMIN DECREASED [None]
  - BLOOD CREATININE INCREASED [None]
  - BLOOD PRESSURE SYSTOLIC INCREASED [None]
  - BLOOD UREA INCREASED [None]
  - CATHETER SITE HAEMORRHAGE [None]
  - HAEMATOCRIT DECREASED [None]
  - HAEMOGLOBIN DECREASED [None]
  - HYPOPROTHROMBINAEMIA [None]
  - HYPOTENSION [None]
  - INTERNATIONAL NORMALISED RATIO INCREASED [None]
  - PREALBUMIN DECREASED [None]
